FAERS Safety Report 8885812 (Version 2)
Quarter: 2013Q1

REPORT INFORMATION
  Report Type: Spontaneous
  Country: US (occurrence: US)
  Receive Date: 20121105
  Receipt Date: 20130123
  Transmission Date: 20140127
  Serious: No
  Sender: FDA-Public Use
  Company Number: US-ELI_LILLY_AND_COMPANY-US201210007477

PATIENT
  Age: 53 Year
  Sex: Male

DRUGS (2)
  1. CYMBALTA [Suspect]
     Indication: DEPRESSION
     Dosage: 60 MG, QD
  2. CYMBALTA [Suspect]
     Dosage: 120 MG, QD

REACTIONS (4)
  - Neuralgia [Unknown]
  - Drug ineffective [Unknown]
  - Memory impairment [Unknown]
  - Fatigue [Unknown]
